FAERS Safety Report 8792092 (Version 1)
Quarter: 2012Q4

REPORT INFORMATION
  Report Type: 
  Country: IT (occurrence: IT)
  Receive Date: 20120918
  Receipt Date: 20120918
  Transmission Date: 20130627
  Serious: Yes (Other)
  Sender: FDA-Public Use
  Company Number: IT-PFIZER INC-2012227845

PATIENT

DRUGS (1)
  1. SUTENT [Suspect]
     Indication: RENAL CELL CARCINOMA
     Dosage: 37.5 mg, 1x/day
     Route: 048
     Dates: start: 20091024

REACTIONS (2)
  - Dermo-hypodermitis [Not Recovered/Not Resolved]
  - Skin lesion [Not Recovered/Not Resolved]
